FAERS Safety Report 8814880 (Version 1)
Quarter: 2012Q4

REPORT INFORMATION
  Report Type: 
  Country: US (occurrence: US)
  Receive Date: 20120928
  Receipt Date: 20120928
  Transmission Date: 20130627
  Serious: Yes (Other)
  Sender: FDA-Public Use
  Company Number: US-MUTUAL PHARMACEUTICAL COMPANY, INC.-QLQN20110010

PATIENT
  Age: 49 Year
  Sex: Female
  Weight: 56.75 kg

DRUGS (5)
  1. QUALAQUIN [Suspect]
     Indication: INFECTION PARASITIC
     Route: 048
     Dates: start: 20110907, end: 20110908
  2. CLINDAMYCIN [Suspect]
     Indication: INFECTION PARASITIC
     Route: 048
     Dates: start: 20110902
  3. AZITHROMYCIN [Suspect]
     Indication: INFECTION PARASITIC
     Route: 048
     Dates: start: 20110829, end: 20110906
  4. LEVOTHYROXINE [Concomitant]
     Indication: HYPOTHYROIDISM
     Route: 048
  5. ATENOLOL [Concomitant]
     Indication: BLOOD PRESSURE HIGH
     Route: 048
     Dates: start: 2011

REACTIONS (3)
  - Deafness transitory [Recovered/Resolved]
  - Hypoacusis [Recovered/Resolved]
  - Tinnitus [Recovered/Resolved]
